FAERS Safety Report 5201735-3 (Version None)
Quarter: 2006Q4

REPORT INFORMATION
  Report Type: 
  Country: None (occurrence: None)
  Receive Date: 20061013
  Receipt Date: 20050914
  Transmission Date: 20070319
  Serious: Yes (Other)
  Sender: FDA-Public Use
  Company Number: S05-USA-04306-01

PATIENT
  Age: 58 Year
  Sex: Male

DRUGS (9)
  1. LEXAPRO [Suspect]
     Indication: ANXIETY
     Dosage: 10 MG QD PO
     Route: 048
     Dates: start: 20050913, end: 20050914
  2. LEXAPRO [Suspect]
     Indication: DEPRESSION
     Dosage: 10 MG QD PO
     Route: 048
     Dates: start: 20050913, end: 20050914
  3. LEXAPRO [Suspect]
     Indication: ANXIETY
     Dosage: 5 MG QD PO
     Route: 048
     Dates: start: 20050907, end: 20050912
  4. LEXAPRO [Suspect]
     Indication: DEPRESSION
     Dosage: 5 MG QD PO
     Route: 048
     Dates: start: 20050907, end: 20050912
  5. EFFEXOR [Concomitant]
  6. ALTACE [Concomitant]
  7. KLONOPIN [Concomitant]
  8. HYDROCHLOROTHIAZIDE [Concomitant]
  9. ZYPREXA [Concomitant]

REACTIONS (1)
  - HYPERTENSION [None]
